FAERS Safety Report 5509499-0 (Version None)
Quarter: 2007Q4

REPORT INFORMATION
  Report Type: 
  Country: None (occurrence: None)
  Receive Date: 20071107
  Receipt Date: 20071026
  Transmission Date: 20080405
  Serious: Yes (Other)
  Sender: FDA-Public Use
  Company Number: US-PFIZER INC-2007090615

PATIENT
  Sex: Female
  Weight: 72.727 kg

DRUGS (2)
  1. DILANTIN [Suspect]
     Indication: GRAND MAL CONVULSION
  2. PHENOBARBITAL TAB [Concomitant]
     Indication: GRAND MAL CONVULSION

REACTIONS (2)
  - CONVULSION [None]
  - MENTAL STATUS CHANGES [None]
